FAERS Safety Report 4961726-4 (Version None)
Quarter: 2006Q2

REPORT INFORMATION
  Report Type: 
  Country: None (occurrence: None)
  Receive Date: 20060404
  Receipt Date: 20060328
  Transmission Date: 20061013
  Serious: Yes (Life-Threatening, Other)
  Sender: FDA-Public Use
  Company Number: PHEH2006US04151

PATIENT
  Sex: Female

DRUGS (1)
  1. FEMARA [Suspect]
     Indication: BREAST CANCER METASTATIC

REACTIONS (4)
  - CARBOHYDRATE ANTIGEN 27.29 INCREASED [None]
  - CONCOMITANT DISEASE AGGRAVATED [None]
  - CONCOMITANT DISEASE PROGRESSION [None]
  - HEPATITIS C [None]
